FAERS Safety Report 7415898-2 (Version None)
Quarter: 2011Q2

REPORT INFORMATION
  Report Type: 
  Country: None (occurrence: None)
  Receive Date: 20110414
  Receipt Date: 20110405
  Transmission Date: 20111010
  Serious: Yes (Other)
  Sender: FDA-Public Use
  Company Number: US-CEPHALON-2011001653

PATIENT
  Sex: Female
  Weight: 58 kg

DRUGS (1)
  1. NUVIGIL [Suspect]
     Indication: NARCOLEPSY
     Route: 048
     Dates: start: 20100101, end: 20100101

REACTIONS (3)
  - RASH [None]
  - SKIN EXFOLIATION [None]
  - URTICARIA [None]
